FAERS Safety Report 6136028-3 (Version None)
Quarter: 2009Q1

REPORT INFORMATION
  Report Type: 
  Country: None (occurrence: None)
  Receive Date: 20090330
  Receipt Date: 20090316
  Transmission Date: 20090719
  Serious: Yes (Other)
  Sender: FDA-Public Use
  Company Number: ES-JNJFOC-20090305196

PATIENT
  Sex: Female

DRUGS (6)
  1. REMICADE [Suspect]
     Indication: MUSCULOSKELETAL PAIN
     Route: 042
  2. METHOTREXATE [Concomitant]
  3. NSAIDS [Concomitant]
  4. FOLIC ACID [Concomitant]
  5. OMEPRAZOLE [Concomitant]
  6. BIPHOSPHONATES [Concomitant]

REACTIONS (2)
  - AMAUROSIS FUGAX [None]
  - ANTIPHOSPHOLIPID SYNDROME [None]
